FAERS Safety Report 9978941 (Version 1)
Quarter: 2014Q1

REPORT INFORMATION
  Report Type: Report from Study
  Country: US (occurrence: US)
  Receive Date: 20140306
  Receipt Date: 20140306
  Transmission Date: 20141002
  Serious: No
  Sender: FDA-Public Use
  Company Number: US-ABBVIE-13P-163-1170242-00

PATIENT
  Age: 28 Year
  Sex: Female
  Weight: 90.8 kg

DRUGS (6)
  1. HUMIRA [Suspect]
     Indication: PSORIASIS
     Dosage: ONE DOSE
     Dates: start: 20131029, end: 20131029
  2. HUMIRA [Suspect]
     Dosage: ONE DOSE
     Dates: start: 20131105, end: 20131105
  3. HUMIRA [Suspect]
     Dates: start: 20131115, end: 20131115
  4. HUMIRA [Suspect]
  5. KLONOPIN [Concomitant]
     Indication: DEPRESSION
  6. KLONOPIN [Concomitant]
     Indication: ANXIETY

REACTIONS (6)
  - Dry skin [Not Recovered/Not Resolved]
  - Incorrect drug administration duration [Not Recovered/Not Resolved]
  - Dry skin [Not Recovered/Not Resolved]
  - Feeling cold [Not Recovered/Not Resolved]
  - Injection site rash [Recovered/Resolved]
  - Injection site erythema [Recovered/Resolved]
